FAERS Safety Report 6803820-9 (Version None)
Quarter: 2010Q2

REPORT INFORMATION
  Report Type: 
  Country: None (occurrence: None)
  Receive Date: 20100628
  Receipt Date: 20100618
  Transmission Date: 20101027
  Serious: Yes (Disabling)
  Sender: FDA-Public Use
  Company Number: JP-WYE-H14648310

PATIENT

DRUGS (3)
  1. ANCARON [Suspect]
     Indication: VENTRICULAR TACHYCARDIA
     Route: 048
  2. ANCARON [Suspect]
     Indication: VENTRICULAR ARRHYTHMIA
  3. BAXO [Suspect]
     Dosage: UNSPECIFIED
     Route: 054

REACTIONS (1)
  - LUPUS-LIKE SYNDROME [None]
